FAERS Safety Report 7207091-3 (Version None)
Quarter: 2011Q1

REPORT INFORMATION
  Report Type: 
  Country: None (occurrence: None)
  Receive Date: 20110103
  Receipt Date: 20101227
  Transmission Date: 20110831
  Serious: Yes (Life-Threatening, Hospitalization)
  Sender: FDA-Public Use
  Company Number: D0061691A

PATIENT
  Age: 51 Year
  Sex: Female
  Weight: 92 kg

DRUGS (15)
  1. SALBUTAMOL [Suspect]
     Route: 055
     Dates: start: 20080201, end: 20080901
  2. SYMBICORT [Concomitant]
     Route: 055
     Dates: start: 20080201, end: 20080501
  3. TORSEMIDE [Suspect]
     Dosage: 20MG PER DAY
     Route: 048
     Dates: start: 20080701, end: 20080903
  4. AERIUS [Concomitant]
     Route: 065
     Dates: start: 20070401, end: 20080101
  5. ALDACTONE [Suspect]
     Dosage: 50MG TWICE PER DAY
     Route: 048
     Dates: start: 20080501
  6. ROCALTROL [Concomitant]
     Indication: RENAL OSTEODYSTROPHY
     Dosage: .25MCG PER DAY
     Route: 048
     Dates: start: 20080301
  7. VIANI [Concomitant]
     Route: 055
     Dates: start: 20041001, end: 20050101
  8. ASPIRIN [Concomitant]
     Dosage: 100MG PER DAY
     Route: 048
     Dates: start: 20080301
  9. AQUAPHOR [Suspect]
     Dosage: 20MG PER DAY
     Route: 048
     Dates: start: 20080301, end: 20080903
  10. MAGNESIUM VERLA [Concomitant]
     Route: 048
     Dates: start: 20080601
  11. CALCILAC [Concomitant]
     Indication: RENAL OSTEODYSTROPHY
     Dosage: 500MG PER DAY
     Route: 048
     Dates: start: 20080601
  12. FALITHROM [Concomitant]
     Dosage: 3MG PER DAY
     Route: 048
     Dates: start: 20080301, end: 20080903
  13. PREDNISOLONE [Suspect]
     Indication: HYPEREOSINOPHILIC SYNDROME
     Dosage: 100MG PER DAY
     Route: 048
     Dates: start: 20080601
  14. BISOPROLOL [Concomitant]
     Dosage: 2.5MG PER DAY
     Route: 048
     Dates: start: 20080601
  15. PANTOZOL [Concomitant]
     Dosage: 40MG PER DAY
     Route: 048
     Dates: start: 20080201

REACTIONS (11)
  - GENERAL PHYSICAL HEALTH DETERIORATION [None]
  - DIARRHOEA [None]
  - METABOLIC ALKALOSIS [None]
  - HYPOKALAEMIA [None]
  - COUGH [None]
  - WEIGHT INCREASED [None]
  - VOMITING [None]
  - DIZZINESS [None]
  - DYSPNOEA [None]
  - DRUG INTERACTION [None]
  - HYPONATRAEMIA [None]
